FAERS Safety Report 9437326 (Version 2)
Quarter: 2013Q3

REPORT INFORMATION
  Report Type: Spontaneous
  Country: US (occurrence: US)
  Receive Date: 20130802
  Receipt Date: 20130930
  Transmission Date: 20140515
  Serious: Yes (Other)
  Sender: FDA-Public Use
  Company Number: US-JNJFOC-20130715088

PATIENT
  Sex: 0

DRUGS (7)
  1. CLADRIBINE [Suspect]
     Indication: HAEMATOLOGICAL MALIGNANCY
     Dosage: FOR 5 DAYS, - 10 TO - 6 DAYS
     Route: 042
  2. THIOTEPA [Suspect]
     Indication: HAEMATOLOGICAL MALIGNANCY
     Dosage: FOR 3 DAYS, DAYS -5 TO -3
     Route: 042
  3. THIOTEPA [Suspect]
     Indication: HAEMATOLOGICAL MALIGNANCY
     Route: 042
  4. RABBIT ANTITHYMOCYTE GLOBULIN [Suspect]
     Indication: HAEMATOLOGICAL MALIGNANCY
     Dosage: ON DAY - 5 ONLY
     Route: 065
  5. GRANULOCYTE-COLONY STIMULATING FACTOR [Concomitant]
     Route: 065
  6. CYCLOSPORINE [Concomitant]
     Indication: IMMUNOSUPPRESSION
     Route: 042
  7. CYCLOSPORINE [Concomitant]
     Indication: IMMUNOSUPPRESSION
     Dosage: LOADING DOSE; DAY -1
     Route: 042

REACTIONS (11)
  - Pulmonary toxicity [Unknown]
  - Nephropathy toxic [Unknown]
  - Gastrointestinal toxicity [Unknown]
  - Hepatotoxicity [Unknown]
  - Renal failure acute [Unknown]
  - Lung infiltration [Unknown]
  - Transaminases increased [Unknown]
  - Stomatitis [Unknown]
  - Nausea [Unknown]
  - Vomiting [Unknown]
  - Off label use [Unknown]
